FAERS Safety Report 10177099 (Version 6)
Quarter: 2016Q4

REPORT INFORMATION
  Report Type: Report from Study
  Country: US (occurrence: US)
  Receive Date: 20140516
  Receipt Date: 20161115
  Transmission Date: 20170206
  Serious: Yes (Hospitalization, Other)
  Sender: FDA-Public Use
  Company Number: US-ACTELION-A-US2014-98755

PATIENT
  Age: 61 Year
  Sex: Female

DRUGS (2)
  1. COUMADIN [Concomitant]
     Active Substance: WARFARIN SODIUM
  2. TRACLEER [Suspect]
     Active Substance: BOSENTAN
     Indication: PULMONARY ARTERIAL HYPERTENSION
     Dosage: 125 MG, BID
     Route: 048
     Dates: start: 20080602

REACTIONS (28)
  - Hypoaesthesia [Recovering/Resolving]
  - Tachycardia [Unknown]
  - Mitral valve disease [Unknown]
  - Mitral valve stenosis [Unknown]
  - Tricuspid valve repair [Unknown]
  - Confusional state [Recovering/Resolving]
  - Dyspnoea [Unknown]
  - Depressed mood [Recovering/Resolving]
  - Dyspnoea exertional [Unknown]
  - Abdominal discomfort [Recovering/Resolving]
  - Pneumonia [Recovered/Resolved]
  - Memory impairment [Unknown]
  - Malaise [Recovering/Resolving]
  - Peripheral swelling [Recovered/Resolved]
  - Muscular weakness [Recovering/Resolving]
  - Dizziness [Unknown]
  - Presyncope [Unknown]
  - Pulmonary arterial hypertension [Unknown]
  - Syncope [Unknown]
  - Heart valve replacement [Recovered/Resolved]
  - Cerebrovascular accident [Recovering/Resolving]
  - Cough [Unknown]
  - Diarrhoea [Recovering/Resolving]
  - Lethargy [Unknown]
  - Nausea [Recovering/Resolving]
  - Anxiety [Recovering/Resolving]
  - Condition aggravated [Unknown]
  - Bone pain [Unknown]

NARRATIVE: CASE EVENT DATE: 2013
